FAERS Safety Report 15695139 (Version 1)
Quarter: 2018Q4

REPORT INFORMATION
  Report Type: Spontaneous
  Country: US (occurrence: US)
  Receive Date: 20181206
  Receipt Date: 20181206
  Transmission Date: 20190205
  Serious: No
  Sender: FDA-Public Use
  Company Number: US-ENDO PHARMACEUTICALS INC-2017-008346

PATIENT
  Sex: Male
  Weight: 77.1 kg

DRUGS (2)
  1. ELIQUIS [Concomitant]
     Active Substance: APIXABAN
     Indication: EMBOLISM
  2. XIAFLEX [Suspect]
     Active Substance: COLLAGENASE CLOSTRIDIUM HISTOLYTICUM
     Indication: PEYRONIE^S DISEASE
     Dosage: UNK, SINGLE, FIRST, SECOND AND THIRD CYCLES OF 2 INJECTIONS
     Route: 026
     Dates: start: 2017, end: 2017

REACTIONS (1)
  - Drug ineffective [Unknown]

NARRATIVE: CASE EVENT DATE: 2017
